FAERS Safety Report 21438500 (Version 1)
Quarter: 2022Q4

REPORT INFORMATION
  Report Type: Spontaneous
  Country: DE (occurrence: DE)
  Receive Date: 20221011
  Receipt Date: 20221011
  Transmission Date: 20230112
  Serious: Yes (Hospitalization, Congenital Anomaly, Other)
  Sender: FDA-Public Use
  Company Number: DE-ALKEM LABORATORIES LIMITED-DE-ALKEM-2022-10571

PATIENT
  Sex: Male
  Weight: 3.025 kg

DRUGS (1)
  1. FINGOLIMOD [Suspect]
     Active Substance: FINGOLIMOD
     Indication: Product used for unknown indication
     Dosage: UNK, (CAPSULE, HARD)
     Route: 064

REACTIONS (6)
  - Congenital cardiovascular anomaly [Unknown]
  - Urinary tract malformation [Unknown]
  - Ventricular septal defect [Not Recovered/Not Resolved]
  - Kidney duplex [Not Recovered/Not Resolved]
  - Renal aplasia [Not Recovered/Not Resolved]
  - Foetal exposure during pregnancy [Unknown]

NARRATIVE: CASE EVENT DATE: 20210811
